FAERS Safety Report 6929802-4 (Version None)
Quarter: 2010Q3

REPORT INFORMATION
  Report Type: 
  Country: None (occurrence: None)
  Receive Date: 20100818
  Receipt Date: 20100805
  Transmission Date: 20110219
  Serious: Yes (Other)
  Sender: FDA-Public Use
  Company Number: CH-CELGENEUS-151-21880-10070476

PATIENT
  Sex: Male
  Weight: 64 kg

DRUGS (5)
  1. REVLIMID [Suspect]
     Indication: MULTIPLE MYELOMA
     Route: 048
     Dates: start: 20080124
  2. REVLIMID [Suspect]
     Route: 048
     Dates: start: 20080718
  3. REVLIMID [Suspect]
     Route: 048
     Dates: start: 20100609
  4. ZOMETA [Concomitant]
     Indication: PRODUCT USED FOR UNKNOWN INDICATION
     Route: 065
  5. ACETAMINOPHEN [Concomitant]
     Indication: PRODUCT USED FOR UNKNOWN INDICATION
     Dosage: MAX 3G A DAY
     Route: 065

REACTIONS (1)
  - TUNNEL VISION [None]
